APPROVED DRUG PRODUCT: MYQORZO
Active Ingredient: AFICAMTEN
Strength: 20MG
Dosage Form/Route: TABLET;ORAL
Application: N219083 | Product #004
Applicant: CYTOKINETICS INC
Approved: Dec 19, 2025 | RLD: Yes | RS: No | Type: RX

PATENTS:
Patent 12370179 | Expires: Jul 15, 2042
Patent 10836755 | Expires: Jan 18, 2039

EXCLUSIVITY:
Code: NCE | Date: Dec 19, 2030